FAERS Safety Report 14173480 (Version 1)
Quarter: 2017Q4

REPORT INFORMATION
  Report Type: Spontaneous
  Country: US (occurrence: US)
  Receive Date: 20171109
  Receipt Date: 20171109
  Transmission Date: 20180321
  Serious: No
  Sender: FDA-Public Use
  Company Number: None

PATIENT
  Age: 33 Year
  Sex: Female

DRUGS (3)
  1. XIIDRA [Suspect]
     Active Substance: LIFITEGRAST
     Indication: DRY EYE
     Route: 047
  2. LORYNA [Concomitant]
     Active Substance: DROSPIRENONE\ETHINYL ESTRADIOL
  3. CLARITIN-D 12 HOUR [Concomitant]
     Active Substance: LORATADINE\PSEUDOEPHEDRINE SULFATE

REACTIONS (3)
  - Photosensitivity reaction [None]
  - Therapy cessation [None]
  - Dry eye [None]
